FAERS Safety Report 8655079 (Version 4)
Quarter: 2012Q4

REPORT INFORMATION
  Report Type: 
  Country: JP (occurrence: JP)
  Receive Date: 20120709
  Receipt Date: 20121019
  Transmission Date: 20130627
  Serious: Yes (Life-Threatening, Hospitalization, Other)
  Sender: FDA-Public Use
  Company Number: JP-UCBSA-060972

PATIENT
  Age: 65 Year
  Sex: Male
  Weight: 55.9 kg

DRUGS (21)
  1. E KEPPRA [Suspect]
     Indication: STATUS EPILEPTICUS
     Route: 048
     Dates: start: 20120526, end: 20120531
  2. E KEPPRA [Suspect]
     Indication: STATUS EPILEPTICUS
     Route: 048
     Dates: start: 20120601, end: 20120602
  3. E KEPPRA [Suspect]
     Indication: STATUS EPILEPTICUS
     Route: 048
     Dates: start: 20120606, end: 20120627
  4. TEMODAL [Suspect]
     Indication: MALIGNANT GLIOMA
     Route: 048
  5. TEGRETOL [Concomitant]
     Dosage: DAILY DOSE: 400 MG
     Route: 048
     Dates: start: 20120606
  6. TEGRETOL [Concomitant]
     Dosage: DAILY DOSE: 400 MG
     Route: 048
     Dates: start: 20120516, end: 20120603
  7. TEGRETOL [Concomitant]
     Dosage: DAILY DOSE : 200 MG
     Route: 048
     Dates: start: 20120321, end: 2012
  8. LANSOPRAZOLE-OD [Concomitant]
     Dosage: DAILY DOSE: 15 MG
     Route: 048
     Dates: start: 19900515
  9. URIEF [Concomitant]
     Indication: DYSURIA
     Dosage: DAILY DOSE: 8 MG
     Route: 048
     Dates: start: 20120120, end: 20120603
  10. MAGNESIUM OXIDE [Concomitant]
     Indication: CONSTIPATION
     Dosage: DAILY DOSE: 1 G
     Route: 048
     Dates: start: 20120120
  11. DEPAKENE [Concomitant]
     Indication: EPILEPSY
     Dosage: DAILY DOSE: 400 MG
     Route: 048
     Dates: start: 20120131, end: 20120209
  12. DEPAKENE [Concomitant]
     Indication: EPILEPSY
     Dosage: DAILY DOSE: 800 MG
     Route: 048
     Dates: start: 20120210
  13. SELENICA-R [Concomitant]
     Indication: EPILEPSY
     Dosage: DAILY DOSE: 800 MG
     Route: 048
     Dates: start: 20120217, end: 20120603
  14. ALEVIATIN [Concomitant]
     Indication: CONVULSION
     Dosage: DAILY DOSE: 250 MG
     Route: 041
     Dates: start: 20120601, end: 20120601
  15. DORMICUM [Concomitant]
     Indication: SEDATIVE THERAPY
     Route: 042
     Dates: start: 20120603, end: 20120610
  16. PRECEDEX [Concomitant]
     Indication: SEDATIVE THERAPY
     Route: 042
     Dates: start: 20120605, end: 20120606
  17. ZOSYN [Concomitant]
     Indication: PNEUMONIA
     Dosage: DAILY DOSE: 13.5 G
     Route: 041
     Dates: start: 20120603, end: 20120605
  18. MEROPENEM [Concomitant]
     Indication: PNEUMONIA
     Dosage: DAILY DOSE: 2G
     Route: 041
     Dates: start: 20120605, end: 20120607
  19. MEROPENEM [Concomitant]
     Indication: PNEUMONIA
     Route: 041
     Dates: start: 20120608, end: 20120613
  20. OMEPRAZOLE [Concomitant]
     Dosage: DAILY DOSE: 40 MG
     Route: 041
     Dates: start: 20120603, end: 20120607
  21. INTERFERON [Concomitant]
     Indication: MALIGNANT GLIOMA

REACTIONS (4)
  - Neutrophil count decreased [Recovered/Resolved]
  - Status epilepticus [Recovered/Resolved]
  - Pneumonia aspiration [Recovered/Resolved]
  - Disseminated intravascular coagulation [Recovered/Resolved]
